FAERS Safety Report 7585809-8 (Version None)
Quarter: 2011Q3

REPORT INFORMATION
  Report Type: 
  Country: None (occurrence: None)
  Receive Date: 20110701
  Receipt Date: 20110624
  Transmission Date: 20111222
  Serious: Yes (Other)
  Sender: FDA-Public Use
  Company Number: US-BRISTOL-MYERS SQUIBB COMPANY-15859473

PATIENT
  Age: 66 Year
  Sex: Male

DRUGS (11)
  1. METOPROLOL TARTRATE [Concomitant]
  2. CARBOPLATIN [Suspect]
     Dates: start: 20110601
  3. ASPIRIN [Concomitant]
  4. TAXOL [Suspect]
     Dates: start: 20110601
  5. AMBIEN [Concomitant]
  6. M.V.I. [Concomitant]
  7. ERBITUX [Suspect]
     Route: 042
     Dates: start: 20110601, end: 20110601
  8. PREDNISONE [Concomitant]
  9. VIAGRA [Concomitant]
  10. PREVACID [Concomitant]
  11. PERCOCET [Concomitant]

REACTIONS (2)
  - THROMBOCYTOPENIA [None]
  - HAEMOPTYSIS [None]
